FAERS Safety Report 8785338 (Version 1)
Quarter: 2012Q4

REPORT INFORMATION
  Report Type: Spontaneous
  Country: AU (occurrence: None)
  Receive Date: 20120831
  Receipt Date: 20120831
  Transmission Date: 20130627
  Serious: Yes (Other)
  Sender: FDA-Public Use
  Company Number: 2012POI057300043

PATIENT
  Age: 73 Year
  Sex: Male

DRUGS (1)
  1. VENLAFAXINE [Suspect]
     Dosage: 375 mg (375 mg, 1 in 1 D), Per Oral
     Route: 048

REACTIONS (4)
  - Torsade de pointes [None]
  - Stress cardiomyopathy [None]
  - Troponin T increased [None]
  - Left ventricular dysfunction [None]
